FAERS Safety Report 21291001 (Version 1)
Quarter: 2022Q3

REPORT INFORMATION
  Report Type: Spontaneous
  Country: IT (occurrence: IT)
  Receive Date: 20220903
  Receipt Date: 20220903
  Transmission Date: 20221027
  Serious: Yes (Other)
  Sender: FDA-Public Use
  Company Number: IT-UCBSA-2022048516

PATIENT
  Sex: Female

DRUGS (1)
  1. LEVETIRACETAM [Suspect]
     Active Substance: LEVETIRACETAM
     Indication: Product used for unknown indication
     Dosage: 500 MILLIGRAM
     Route: 065

REACTIONS (6)
  - Benign breast neoplasm [Unknown]
  - Breast cyst [Unknown]
  - Blood prolactin increased [Unknown]
  - Galactorrhoea [Unknown]
  - Lymphocytosis [Unknown]
  - Tension [Unknown]
